FAERS Safety Report 19287366 (Version 1)
Quarter: 2021Q2

REPORT INFORMATION
  Report Type: Spontaneous
  Country: US (occurrence: US)
  Receive Date: 20210521
  Receipt Date: 20210521
  Transmission Date: 20210717
  Serious: No
  Sender: FDA-Public Use
  Company Number: US-RADIUS HEALTH INC.-2021US000403

PATIENT
  Age: 72 Year
  Sex: Female

DRUGS (16)
  1. IBUPROFEN. [Concomitant]
     Active Substance: IBUPROFEN
     Indication: PAIN
     Dosage: ADVIL, MOTRIN, 800 MG, Q8H, PRN PAIN
     Route: 048
     Dates: start: 20191226
  2. ZINC GLUCONATE [Concomitant]
     Active Substance: ZINC GLUCONATE
     Indication: PRODUCT USED FOR UNKNOWN INDICATION
     Dosage: 50 MILLIGRAM, QD
     Route: 048
  3. HYPROMELLOSE [Concomitant]
     Active Substance: HYPROMELLOSES
     Indication: PRODUCT USED FOR UNKNOWN INDICATION
     Dosage: SYSTANE GEL, Q HR, LEFT EYE, AS NEEDED
     Route: 047
  4. XANAX [Concomitant]
     Active Substance: ALPRAZOLAM
     Indication: INSOMNIA
     Dosage: 0.5 OF 0.5 MG (0.25 MG) NIGHTLY PRN FOR INSOMNIA
     Route: 048
     Dates: start: 20200720
  5. ASPIRIN 81 [Concomitant]
     Active Substance: ASPIRIN
     Indication: ANTIPLATELET THERAPY
     Dosage: 81 MICROGRAM, QD
     Route: 048
  6. PROLIA [Concomitant]
     Active Substance: DENOSUMAB
     Indication: PRODUCT USED FOR UNKNOWN INDICATION
     Dosage: INJECT EVERY 6 MONTHS
     Route: 058
  7. HYZAAR [Concomitant]
     Active Substance: HYDROCHLOROTHIAZIDE\LOSARTAN POTASSIUM
     Indication: PRODUCT USED FOR UNKNOWN INDICATION
     Dosage: 50/12.5 MG, 0.5 TABLET DAILY
     Route: 048
     Dates: start: 20201130
  8. MAGOX [Concomitant]
     Indication: PRODUCT USED FOR UNKNOWN INDICATION
     Dosage: 400 MILLIGRAM, QD
     Route: 048
     Dates: start: 20190509
  9. PRILOSEC [Concomitant]
     Active Substance: OMEPRAZOLE MAGNESIUM
     Indication: PRODUCT USED FOR UNKNOWN INDICATION
     Dosage: 20 MILLIGRAM, BID
     Route: 048
     Dates: start: 20210104
  10. TYMLOS [Suspect]
     Active Substance: ABALOPARATIDE
     Indication: COMPRESSION FRACTURE
     Dosage: 80 MCG, QD
     Route: 058
     Dates: start: 20210123, end: 20210127
  11. OSCAL [Concomitant]
     Active Substance: CALCIUM CARBONATE
     Indication: PRODUCT USED FOR UNKNOWN INDICATION
     Dosage: 600 MG, BID WITH MEALS
     Route: 048
  12. REPATHA [Concomitant]
     Active Substance: EVOLOCUMAB
     Indication: PRODUCT USED FOR UNKNOWN INDICATION
     Dosage: INJECT 140 MG SQ Q14 DAYS
     Route: 058
     Dates: start: 20201201
  13. ASTELIN [Concomitant]
     Active Substance: AZELASTINE HYDROCHLORIDE
     Indication: PRODUCT USED FOR UNKNOWN INDICATION
     Dosage: 137 MCG, 1 SPRAY EACH NOSTRIL BID
     Route: 045
     Dates: start: 20200908
  14. VITAMIN D3 [Concomitant]
     Active Substance: CHOLECALCIFEROL
     Indication: PRODUCT USED FOR UNKNOWN INDICATION
     Dosage: 2000 UNITS DAILY
     Route: 048
  15. ZETIA [Concomitant]
     Active Substance: EZETIMIBE
     Indication: PRODUCT USED FOR UNKNOWN INDICATION
     Dosage: 10 MILLIGRAM, QD
     Route: 048
     Dates: start: 20200723
  16. SYSTANE BALANCE [Concomitant]
     Active Substance: PROPYLENE GLYCOL
     Indication: PRODUCT USED FOR UNKNOWN INDICATION
     Dosage: 1 DROP, FREQUENCY NOT PROVIDED
     Route: 047

REACTIONS (8)
  - Blood pressure decreased [Unknown]
  - Heart rate increased [Unknown]
  - Off label use [Recovered/Resolved]
  - Chest discomfort [Unknown]
  - Nausea [Unknown]
  - Impaired quality of life [Unknown]
  - Presyncope [Unknown]
  - Palpitations [Unknown]

NARRATIVE: CASE EVENT DATE: 20210123
